FAERS Safety Report 7921175-3 (Version None)
Quarter: 2011Q4

REPORT INFORMATION
  Report Type: 
  Country: None (occurrence: None)
  Receive Date: 20111117
  Receipt Date: 20111110
  Transmission Date: 20120403
  Serious: Yes (Death, Other)
  Sender: FDA-Public Use
  Company Number: IL-TEVA-309507ISR

PATIENT
  Sex: Female

DRUGS (9)
  1. TRASTUZUMAB [Suspect]
     Indication: BREAST CANCER
  2. FENTANYL [Concomitant]
  3. ALDACTONE [Concomitant]
  4. DOXORUBICIN HCL [Suspect]
     Indication: BREAST CANCER
  5. PACLITAXEL [Suspect]
     Indication: BREAST CANCER
  6. CARBOPLATIN [Suspect]
     Indication: BREAST CANCER
  7. FUROSEMIDE [Concomitant]
  8. CYCLOPHOSPHAMIDE [Suspect]
     Indication: BREAST CANCER
  9. GEMCITABINE [Suspect]
     Indication: BREAST CANCER

REACTIONS (2)
  - HEPATIC CIRRHOSIS [None]
  - HEPATIC FAILURE [None]
